FAERS Safety Report 5923340-3 (Version None)
Quarter: 2008Q4

REPORT INFORMATION
  Report Type: 
  Country: None (occurrence: None)
  Receive Date: 20081020
  Receipt Date: 20081007
  Transmission Date: 20090506
  Serious: Yes (Death, Hospitalization)
  Sender: FDA-Public Use
  Company Number: DE-AMGEN-UK307545

PATIENT
  Sex: Male

DRUGS (5)
  1. ROMIPLOSTIM [Suspect]
     Indication: IDIOPATHIC THROMBOCYTOPENIC PURPURA
     Route: 058
     Dates: start: 20070605, end: 20080909
  2. VALSARTAN [Concomitant]
     Route: 065
  3. BISOPROLOL FUMARATE [Concomitant]
     Route: 065
  4. INSULIN HUMAN [Concomitant]
     Route: 065
  5. AMLODIPINE [Concomitant]

REACTIONS (1)
  - MYOCARDIAL INFARCTION [None]
